FAERS Safety Report 6201476-X (Version None)
Quarter: 2009Q2

REPORT INFORMATION
  Report Type: 
  Country: None (occurrence: None)
  Receive Date: 20090526
  Receipt Date: 20090513
  Transmission Date: 20091009
  Serious: Yes (Hospitalization)
  Sender: FDA-Public Use
  Company Number: DE-ROCHE-633809

PATIENT

DRUGS (3)
  1. MYCOPHENOLATE MOFETIL [Suspect]
     Indication: LUNG TRANSPLANT
     Route: 048
  2. PROGRAF [Suspect]
     Indication: LUNG TRANSPLANT
     Route: 048
  3. DECORTIN H [Suspect]
     Indication: LUNG TRANSPLANT
     Route: 048

REACTIONS (1)
  - HOSPITALISATION [None]
